FAERS Safety Report 7880184-3 (Version None)
Quarter: 2011Q4

REPORT INFORMATION
  Report Type: 
  Country: None (occurrence: None)
  Receive Date: 20111101
  Receipt Date: 20111024
  Transmission Date: 20120403
  Serious: Yes (Other)
  Sender: FDA-Public Use
  Company Number: US-PFIZER INC-2011259471

PATIENT
  Sex: Male

DRUGS (2)
  1. NUEDEXTA [Suspect]
     Dosage: UNK
     Dates: start: 20110101
  2. EFFEXOR [Suspect]
     Indication: AMYOTROPHIC LATERAL SCLEROSIS
     Dosage: DEXTROMETHORPHAN HYDROBROMIDE 20 MG/QUINIDINE SULFATE 10 MG, UNK FREQUENCY
     Dates: start: 20110101

REACTIONS (1)
  - SEROTONIN SYNDROME [None]
